FAERS Safety Report 7347113-2 (Version None)
Quarter: 2011Q1

REPORT INFORMATION
  Report Type: 
  Country: None (occurrence: None)
  Receive Date: 20110311
  Receipt Date: 20110308
  Transmission Date: 20110831
  Serious: Yes (Death)
  Sender: FDA-Public Use
  Company Number: US-ASTRAZENECA-2007UW25290

PATIENT
  Age: 21439 Day
  Sex: Female
  Weight: 81.2 kg

DRUGS (9)
  1. SEROQUEL [Suspect]
     Dosage: 50 - 100 MG AT NIGHT
     Route: 048
     Dates: start: 20030710, end: 20060301
  2. TRAZODONE HCL [Concomitant]
     Dosage: 1- 2 TABLETS AT NIGHT AS NEEDED
     Dates: start: 20060301
  3. SEROQUEL [Suspect]
     Indication: SCHIZOPHRENIA
     Dosage: 50 MG - 400 MG
     Route: 048
     Dates: start: 20030701, end: 20060301
  4. SEROQUEL [Suspect]
     Dosage: 50 - 100 MG AT NIGHT
     Route: 048
     Dates: start: 20030710, end: 20060301
  5. WELLBUTRIN SR [Concomitant]
     Dosage: 100 - 200 MG DAILY
     Route: 048
     Dates: start: 20030710
  6. SEROQUEL [Suspect]
     Dosage: 50 - 100 MG AT NIGHT
     Route: 048
     Dates: start: 20030710, end: 20060301
  7. SEROQUEL [Suspect]
     Indication: SLEEP DISORDER
     Dosage: 50 MG - 400 MG
     Route: 048
     Dates: start: 20030701, end: 20060301
  8. SEROQUEL [Suspect]
     Indication: MAJOR DEPRESSION
     Dosage: 50 MG - 400 MG
     Route: 048
     Dates: start: 20030701, end: 20060301
  9. ZYPREXA [Concomitant]
     Indication: DEPRESSION
     Route: 048
     Dates: start: 20030101, end: 20030701

REACTIONS (8)
  - TYPE 2 DIABETES MELLITUS [None]
  - ANGINA PECTORIS [None]
  - GALLBLADDER DISORDER [None]
  - CARDIAC DISORDER [None]
  - INTRA-ABDOMINAL HAEMORRHAGE [None]
  - DYSPNOEA [None]
  - COLONIC HAEMATOMA [None]
  - ARTERIOSCLEROSIS [None]
